FAERS Safety Report 6180221-0 (Version None)
Quarter: 2009Q2

REPORT INFORMATION
  Report Type: 
  Country: None (occurrence: None)
  Receive Date: 20090504
  Receipt Date: 20090309
  Transmission Date: 20091009
  Serious: Yes (Hospitalization)
  Sender: FDA-Public Use
  Company Number: KV200801001

PATIENT
  Age: 81 Year
  Sex: Female
  Weight: 46.7 kg

DRUGS (7)
  1. MORPHINE SULFATE [Suspect]
     Indication: PAIN
     Dosage: 15 MG
     Dates: start: 20080812, end: 20080818
  2. MULTIVITAMIN /00831701/ (VITAMINS NOS) [Concomitant]
  3. VICODIN [Concomitant]
  4. WELLBUTRIN [Concomitant]
  5. HYDROXYZINE [Concomitant]
  6. XANAX [Concomitant]
  7. ENALAPRIL MALEATE [Concomitant]

REACTIONS (7)
  - ASTHENIA [None]
  - CONDITION AGGRAVATED [None]
  - PAIN [None]
  - POLYMYOSITIS [None]
  - PRODUCT QUALITY ISSUE [None]
  - PYREXIA [None]
  - SCOLIOSIS [None]
